APPROVED DRUG PRODUCT: OXALIPLATIN
Active Ingredient: OXALIPLATIN
Strength: 50MG/10ML (5MG/ML)
Dosage Form/Route: INJECTABLE;INTRAVENOUS
Application: A090030 | Product #001
Applicant: FRESENIUS KABI USA LLC
Approved: Jan 31, 2017 | RLD: No | RS: No | Type: DISCN